FAERS Safety Report 8092495-X (Version None)
Quarter: 2012Q1

REPORT INFORMATION
  Report Type: 
  Country: None (occurrence: None)
  Receive Date: 20120128
  Receipt Date: 20110826
  Transmission Date: 20120608
  Serious: No
  Sender: FDA-Public Use
  Company Number: US-ABBOTT-11P-163-0849729-00

PATIENT
  Sex: Female

DRUGS (7)
  1. HUMIRA [Suspect]
     Dosage: 40MG - DAY 8
     Route: 058
  2. MEDICATED TOPICAL CREAM [Concomitant]
     Indication: PRODUCT USED FOR UNKNOWN INDICATION
     Route: 061
  3. MEDICATED SHAMPOOS [Concomitant]
     Indication: PRODUCT USED FOR UNKNOWN INDICATION
  4. HUMIRA [Suspect]
     Indication: PSORIASIS
     Dosage: 80MG - DAY 1
     Route: 058
     Dates: start: 20110811
  5. HUMIRA [Suspect]
     Dosage: 40 MG - DAY 22
     Route: 058
  6. METOPROLOL TARTRATE [Concomitant]
     Indication: HYPERTENSION
  7. HUMIRA [Suspect]
     Route: 058

REACTIONS (1)
  - INJECTION SITE HAEMATOMA [None]
